FAERS Safety Report 5477341-2 (Version None)
Quarter: 2007Q3

REPORT INFORMATION
  Report Type: 
  Country: None (occurrence: None)
  Receive Date: 20070905
  Receipt Date: 20070513
  Transmission Date: 20080115
  Serious: Yes (Other)
  Sender: FDA-Public Use
  Company Number: 2007038701

PATIENT
  Age: 46 Year
  Sex: Female
  Weight: 78 kg

DRUGS (5)
  1. DETROL LA [Suspect]
     Indication: POLLAKIURIA
     Dosage: 4 MG (4 MG, 1 IN 1 D)
     Dates: start: 20070430
  2. ZYPREXA [Concomitant]
  3. PERCOCET [Concomitant]
  4. NASONEX [Concomitant]
  5. ALLEGRA (FEXOFENADINE HYDROCHLORIDE) [Concomitant]

REACTIONS (2)
  - ABDOMINAL DISTENSION [None]
  - URINARY RETENTION [None]
